FAERS Safety Report 14994443 (Version 1)
Quarter: 2018Q2

REPORT INFORMATION
  Report Type: Spontaneous
  Country: US (occurrence: US)
  Receive Date: 20180611
  Receipt Date: 20180611
  Transmission Date: 20180711
  Serious: No
  Sender: FDA-Public Use
  Company Number: US-BAYER-2018-108945

PATIENT
  Age: 65 Year
  Sex: Male
  Weight: 80 kg

DRUGS (3)
  1. CLARITIN [Suspect]
     Active Substance: LORATADINE
     Indication: NASOPHARYNGITIS
  2. ZYRTEC [Suspect]
     Active Substance: CETIRIZINE HYDROCHLORIDE
     Dosage: UNK
  3. CLARITIN [Suspect]
     Active Substance: LORATADINE
     Indication: HYPERSENSITIVITY
     Dosage: UNK
     Route: 048
     Dates: start: 20180525, end: 2018

REACTIONS (7)
  - Erythema [Recovering/Resolving]
  - Rash macular [Recovering/Resolving]
  - Eye swelling [Recovered/Resolved]
  - Dry skin [Recovering/Resolving]
  - Pruritus [Recovered/Resolved]
  - Product prescribing issue [Unknown]
  - Rash [Recovering/Resolving]
